FAERS Safety Report 21339097 (Version 1)
Quarter: 2022Q3

REPORT INFORMATION
  Report Type: Spontaneous
  Country: US (occurrence: US)
  Receive Date: 20220915
  Receipt Date: 20220915
  Transmission Date: 20221027
  Serious: No
  Sender: FDA-Public Use
  Company Number: US-VIVUS, Inc.-2022V1000036

PATIENT
  Age: 48 Year
  Sex: Male

DRUGS (1)
  1. QSYMIA [Suspect]
     Active Substance: PHENTERMINE HYDROCHLORIDE\TOPIRAMATE
     Indication: Weight decreased
     Route: 048
     Dates: start: 20220122, end: 20220201

REACTIONS (4)
  - Burning sensation [Recovering/Resolving]
  - Blister [Recovering/Resolving]
  - Rash [Recovering/Resolving]
  - Emotional distress [Unknown]

NARRATIVE: CASE EVENT DATE: 20220122
